FAERS Safety Report 24059959 (Version 1)
Quarter: 2024Q3

REPORT INFORMATION
  Report Type: Spontaneous
  Country: US (occurrence: None)
  Receive Date: 20240704
  Receipt Date: 20240704
  Transmission Date: 20241016
  Serious: Yes (Other)
  Sender: Public
  Company Number: None

PATIENT
  Age: 69 Year
  Sex: Female
  Weight: 57.15 kg

DRUGS (1)
  1. ROSUVASTATIN [Suspect]
     Active Substance: ROSUVASTATIN
     Indication: Blood cholesterol increased
     Dosage: OTHER QUANTITY : 1 TABLET(S);?FREQUENCY : DAILY;?
     Route: 048
     Dates: start: 20240626, end: 20240629

REACTIONS (9)
  - Arthralgia [None]
  - Fatigue [None]
  - Nausea [None]
  - Arthralgia [None]
  - Abdominal pain upper [None]
  - Loss of personal independence in daily activities [None]
  - Lethargy [None]
  - Muscular weakness [None]
  - Hepatic pain [None]

NARRATIVE: CASE EVENT DATE: 20240627
